FAERS Safety Report 19488856 (Version 1)
Quarter: 2021Q3

REPORT INFORMATION
  Report Type: Report from Study
  Country: PH (occurrence: PH)
  Receive Date: 20210702
  Receipt Date: 20210702
  Transmission Date: 20211014
  Serious: Yes (Other)
  Sender: FDA-Public Use
  Company Number: PH-INCYTE CORPORATION-2021IN005839

PATIENT

DRUGS (2)
  1. JAKAVI [Suspect]
     Active Substance: RUXOLITINIB
     Indication: PRODUCT USED FOR UNKNOWN INDICATION
     Dosage: 1 DF, BID (15 MG STRENGTH)
     Route: 048
  2. JAKAVI [Suspect]
     Active Substance: RUXOLITINIB
     Dosage: 3 DF, QD (STRENGTH 5 MG)
     Route: 048

REACTIONS (2)
  - Inappropriate schedule of product administration [Unknown]
  - White blood cell count decreased [Unknown]
